FAERS Safety Report 11440899 (Version 1)
Quarter: 2015Q3

REPORT INFORMATION
  Report Type: Spontaneous
  Country: US (occurrence: US)
  Receive Date: 20150901
  Receipt Date: 20150901
  Transmission Date: 20151125
  Serious: No
  Sender: FDA-Public Use
  Company Number: US-ROCHE-1074767

PATIENT
  Sex: Female

DRUGS (3)
  1. BOCEPREVIR [Concomitant]
     Active Substance: BOCEPREVIR
  2. RIBAVIRIN. [Suspect]
     Active Substance: RIBAVIRIN
     Indication: HEPATITIS C
     Dosage: DAILY
     Route: 048
     Dates: start: 20120523
  3. PEGASYS [Suspect]
     Active Substance: PEGINTERFERON ALFA-2A
     Indication: HEPATITIS C
     Route: 058
     Dates: start: 20120523

REACTIONS (3)
  - Abdominal pain [Unknown]
  - Medication error [Unknown]
  - Influenza like illness [Unknown]
